FAERS Safety Report 8183422-5 (Version None)
Quarter: 2012Q1

REPORT INFORMATION
  Report Type: 
  Country: None (occurrence: None)
  Receive Date: 20120305
  Receipt Date: 20120223
  Transmission Date: 20120608
  Serious: Yes (Life-Threatening)
  Sender: FDA-Public Use
  Company Number: TH-COVIDIEN/TYCO HEALTHCARE/MALLINCKRODT-T201200694

PATIENT
  Age: 82 Year
  Sex: Female
  Weight: 65 kg

DRUGS (4)
  1. METFORMIN HCL [Concomitant]
  2. OPTIRAY 160 [Suspect]
     Indication: UROGRAM
     Dosage: 50 ML SINGLE
     Route: 042
     Dates: start: 20120222, end: 20120222
  3. HYDROCHLOROTHIAZIDE [Concomitant]
  4. GLYBURIDE [Concomitant]

REACTIONS (1)
  - ANAPHYLACTIC SHOCK [None]
